FAERS Safety Report 8964052 (Version 3)
Quarter: 2013Q2

REPORT INFORMATION
  Report Type: Spontaneous
  Country: US (occurrence: US)
  Receive Date: 20121214
  Receipt Date: 20130425
  Transmission Date: 20140414
  Serious: Yes (Death, Hospitalization)
  Sender: FDA-Public Use
  Company Number: US-BAYER-2012-129249

PATIENT
  Age: 30 Year
  Sex: Female
  Weight: 77.1 kg

DRUGS (20)
  1. YAZ [Suspect]
     Indication: PREMENSTRUAL DYSPHORIC DISORDER
     Dosage: UNK
     Dates: start: 200807, end: 200812
  2. YAZ [Suspect]
     Indication: PREMENSTRUAL SYNDROME
  3. ZOSYN [Concomitant]
  4. CIPROFLOXACIN [Concomitant]
  5. PROCHLORPERAZINE [Concomitant]
  6. ALLOPURINOL [Concomitant]
  7. CYCLOBENZAPRINE [Concomitant]
  8. EMLA [Concomitant]
     Route: 061
  9. ONDANSETRON [Concomitant]
  10. ACETAMINOPHEN [Concomitant]
  11. NAPROXEN [Concomitant]
     Dosage: UNK
     Dates: start: 20100604
  12. VALIUM [Concomitant]
     Dosage: UNK
     Dates: start: 20100604
  13. NEULASTA [Concomitant]
     Dosage: UNK
     Dates: start: 20110121
  14. NYSTATIN [Concomitant]
     Dosage: UNK
     Dates: start: 20110128
  15. AZITHROMYCIN [Concomitant]
     Dosage: UNK
     Dates: start: 20110128
  16. LIDOCAINE [Concomitant]
     Dosage: UNK
     Route: 061
     Dates: start: 20110128
  17. POVIDONE [Concomitant]
     Route: 047
  18. SODIUM CHLORIDE [Concomitant]
     Dosage: UNK
     Route: 045
     Dates: start: 20110128
  19. OXYCODONE [Concomitant]
     Dosage: UNK
     Dates: start: 20110128
  20. LIDOCAINE W/PRILOCAINE [Concomitant]
     Dosage: UNK
     Route: 061
     Dates: start: 20110128

REACTIONS (11)
  - Thrombosis [None]
  - Atrial thrombosis [None]
  - Non-Hodgkin^s lymphoma [Fatal]
  - Pelvic neoplasm [None]
  - Pain [None]
  - Injury [None]
  - General physical health deterioration [None]
  - Anxiety [None]
  - Anhedonia [None]
  - Emotional distress [None]
  - Pain [None]
